FAERS Safety Report 7535562-9 (Version None)
Quarter: 2011Q2

REPORT INFORMATION
  Report Type: 
  Country: None (occurrence: None)
  Receive Date: 20110609
  Receipt Date: 20110128
  Transmission Date: 20111010
  Serious: Yes (Other)
  Sender: FDA-Public Use
  Company Number: US-BAYER-201010670NA

PATIENT
  Age: 18 Year
  Sex: Female
  Weight: 142 kg

DRUGS (13)
  1. YASMIN [Suspect]
     Indication: CONTRACEPTION
     Dosage: UNK
     Dates: start: 20070901, end: 20090401
  2. LORTAB [Concomitant]
     Indication: PAIN
  3. PHENTERMINE [Concomitant]
     Indication: WEIGHT DECREASED
     Dosage: UNK
     Dates: start: 20080101
  4. SYNTHROID [Concomitant]
     Indication: HYPOTHYROIDISM
     Dosage: UNK
     Dates: start: 20071001, end: 20090101
  5. FIORICET [Concomitant]
     Indication: HEADACHE
     Dosage: UNK
     Dates: start: 20080101, end: 20100101
  6. METFORMIN HCL [Concomitant]
     Indication: POLYCYSTIC OVARIES
     Dosage: UNK
     Dates: start: 20070101, end: 20090101
  7. HYDROXYZINE [Concomitant]
     Indication: ANTIALLERGIC THERAPY
     Dosage: UNK
     Dates: start: 20070101
  8. AMOXICILLIN [Concomitant]
     Indication: ANTIBIOTIC THERAPY
     Dosage: UNK
     Dates: start: 20081222, end: 20090101
  9. PROZAC [Concomitant]
     Indication: DEPRESSION
     Dosage: UNK
     Dates: start: 20080101, end: 20100101
  10. PRENATAL VITAMINS [VIT C,VIT H,MIN NOS,VIT PP,RETINOL,VIT E,VIT B NOS, [Concomitant]
     Indication: MEDICAL DIET
     Dosage: UNK
     Dates: start: 20080101
  11. FIORICET [Concomitant]
     Indication: MIGRAINE
  12. YASMIN [Suspect]
     Dosage: UNK
     Dates: start: 20070615, end: 20090505
  13. ATENOLOL [Concomitant]
     Indication: HYPERTENSION
     Dosage: UNK
     Dates: start: 20070101

REACTIONS (4)
  - CHOLESTEROSIS [None]
  - GALLBLADDER DISORDER [None]
  - CHOLECYSTITIS CHRONIC [None]
  - CHOLELITHIASIS [None]
